FAERS Safety Report 18846432 (Version 1)
Quarter: 2021Q1

REPORT INFORMATION
  Report Type: Report from Study
  Country: JP (occurrence: JP)
  Receive Date: 20210204
  Receipt Date: 20210204
  Transmission Date: 20210419
  Serious: Yes (Congenital Anomaly, Other)
  Sender: FDA-Public Use
  Company Number: JP-TEVA-2021-JP-1874587

PATIENT

DRUGS (4)
  1. NIFEDIPINE. [Suspect]
     Active Substance: NIFEDIPINE
     Indication: ESSENTIAL HYPERTENSION
     Route: 064
  2. METHYLDOPA. [Suspect]
     Active Substance: METHYLDOPA
     Indication: ESSENTIAL HYPERTENSION
     Route: 064
  3. AMLODIPINE [Suspect]
     Active Substance: AMLODIPINE BESYLATE
     Indication: ESSENTIAL HYPERTENSION
     Dosage: TOTAL AMLODIPINE DOSE WAS 175MG FOR 35 DAYS
     Route: 064
  4. ASPIRIN. [Suspect]
     Active Substance: ASPIRIN
     Indication: PRODUCT USED FOR UNKNOWN INDICATION
     Dosage: LOW?DOSE
     Route: 064

REACTIONS (2)
  - Foetal exposure during pregnancy [Unknown]
  - Pulmonary valve stenosis [Unknown]
